FAERS Safety Report 16206384 (Version 1)
Quarter: 2019Q2

REPORT INFORMATION
  Report Type: Spontaneous
  Country: JP (occurrence: JP)
  Receive Date: 20190417
  Receipt Date: 20190417
  Transmission Date: 20190711
  Serious: Yes (Other)
  Sender: FDA-Public Use
  Company Number: JP-TEVA-2019-JP-1038453

PATIENT
  Age: 80 Year
  Sex: Male
  Weight: 46.4 kg

DRUGS (9)
  1. CYCLOPHOSPHAMIDE. [Suspect]
     Active Substance: CYCLOPHOSPHAMIDE
     Indication: IMMUNOSUPPRESSANT DRUG THERAPY
  2. METHYLPREDNISOLONE. [Suspect]
     Active Substance: METHYLPREDNISOLONE
     Indication: STEROID THERAPY
  3. IMMUNOGLOBULIN IV [Concomitant]
     Active Substance: HUMAN IMMUNOGLOBULIN G
     Indication: MICROSCOPIC POLYANGIITIS
     Dosage: FOR FIVE DAYS
     Route: 042
  4. PREDNISOLONE. [Suspect]
     Active Substance: PREDNISOLONE
     Indication: MICROSCOPIC POLYANGIITIS
     Dosage: WHICH WAS TAPERED GRADUALLY TO 35MG AND THEN 30MG
     Route: 065
  5. AZATHIOPRINE. [Suspect]
     Active Substance: AZATHIOPRINE
     Indication: MICROSCOPIC POLYANGIITIS
     Dosage: 25 MILLIGRAM DAILY;
     Route: 065
  6. AZATHIOPRINE. [Suspect]
     Active Substance: AZATHIOPRINE
     Indication: IMMUNOSUPPRESSANT DRUG THERAPY
  7. METHYLPREDNISOLONE. [Suspect]
     Active Substance: METHYLPREDNISOLONE
     Indication: MICROSCOPIC POLYANGIITIS
     Dosage: 500 MILLIGRAM DAILY; TWO WEEKLY COURSES OF PULSE STEROID THERAPY
     Route: 065
  8. PREDNISOLONE. [Suspect]
     Active Substance: PREDNISOLONE
     Indication: STEROID THERAPY
  9. CYCLOPHOSPHAMIDE. [Suspect]
     Active Substance: CYCLOPHOSPHAMIDE
     Indication: MICROSCOPIC POLYANGIITIS
     Route: 065

REACTIONS (1)
  - Agranulocytosis [Unknown]
